FAERS Safety Report 8302592-9 (Version None)
Quarter: 2012Q2

REPORT INFORMATION
  Report Type: 
  Country: None (occurrence: None)
  Receive Date: 20120420
  Receipt Date: 20120412
  Transmission Date: 20120825
  Serious: Yes (Hospitalization, Other)
  Sender: FDA-Public Use
  Company Number: US-ROCHE-1048668

PATIENT
  Age: 33 Year
  Sex: Female

DRUGS (1)
  1. ALTEPLASE [Suspect]
     Indication: ANGIOPATHY
     Dosage: FOR 2 WEEKS

REACTIONS (3)
  - DEPRESSION [None]
  - HAEMORRHAGE [None]
  - DISORIENTATION [None]
